FAERS Safety Report 22087958 (Version 1)
Quarter: 2023Q1

REPORT INFORMATION
  Report Type: Report from Study
  Country: US (occurrence: US)
  Receive Date: 20230313
  Receipt Date: 20230313
  Transmission Date: 20230418
  Serious: Yes (Other)
  Sender: FDA-Public Use
  Company Number: US-ABBVIE-4333693

PATIENT
  Sex: Male

DRUGS (1)
  1. HUMIRA [Suspect]
     Active Substance: ADALIMUMAB
     Indication: Product used for unknown indication
     Dosage: THE ONSET DATE FOR ALL ADVERSE EVENT IS 2023.
     Route: 058
     Dates: start: 20230306

REACTIONS (4)
  - Hepatic cirrhosis [Recovering/Resolving]
  - Pain [Unknown]
  - Illness [Unknown]
  - Hypertension [Unknown]
